FAERS Safety Report 6537932-4 (Version None)
Quarter: 2009Q4

REPORT INFORMATION
  Report Type: 
  Country: None (occurrence: None)
  Receive Date: 20091229
  Receipt Date: 20091118
  Transmission Date: 20100525
  Serious: No
  Sender: FDA-Public Use
  Company Number: 1000010239

PATIENT
  Age: 85 Year
  Sex: Female

DRUGS (7)
  1. BYSTOLIC [Suspect]
     Indication: HYPERTENSION
     Dosage: 5 MG (5 MG,1 IN 1 D),ORAL
     Route: 048
     Dates: start: 20091001
  2. HYZAAR [Concomitant]
  3. NORVASC [Concomitant]
  4. MULTI-VITAMINS [Concomitant]
  5. VITAMIN D [Concomitant]
  6. COENZYME Q10 [Concomitant]
  7. WARFARIN [Concomitant]

REACTIONS (4)
  - CHEST PAIN [None]
  - DRY SKIN [None]
  - FEELING COLD [None]
  - HEADACHE [None]
